FAERS Safety Report 7283641-6 (Version None)
Quarter: 2011Q1

REPORT INFORMATION
  Report Type: 
  Country: None (occurrence: None)
  Receive Date: 20110209
  Receipt Date: 20110128
  Transmission Date: 20110831
  Serious: Yes (Other)
  Sender: FDA-Public Use
  Company Number: CA-ELI_LILLY_AND_COMPANY-CA201101007201

PATIENT
  Sex: Male

DRUGS (11)
  1. ZOPICLONE [Concomitant]
     Dosage: 7.5 MG, EACH EVENING
     Route: 048
  2. CIMETIDINE [Concomitant]
     Dosage: 300 MG, 3/D
     Route: 048
  3. CRESTOR [Concomitant]
     Dosage: 10 MG, UNK
  4. SERTRALINE HYDROCHLORIDE [Concomitant]
     Dosage: 100 MG, EACH MORNING
     Route: 048
  5. TRAZODONE [Concomitant]
     Dosage: 75 MG, EACH EVENING
     Route: 048
  6. NEFAZODONE HCL [Concomitant]
     Dosage: 200 MG, 2/D
     Route: 048
  7. CIMETIDINE [Concomitant]
     Dosage: 600 MG, EACH EVENING
     Route: 048
  8. CLONAZEPAM [Concomitant]
     Dosage: 0.5 MG, UNK
  9. ZYPREXA [Suspect]
     Dosage: 5 MG, DAILY (1/D)
     Route: 048
     Dates: start: 20010518
  10. RANITIDINE [Concomitant]
     Dosage: 150 MG, 2/D
  11. GLYBURIDE [Concomitant]
     Dosage: 2.5 MG, DAILY (1/D)

REACTIONS (3)
  - DIABETES MELLITUS [None]
  - WEIGHT INCREASED [None]
  - DEPRESSION [None]
